FAERS Safety Report 8238424-7 (Version None)
Quarter: 2012Q1

REPORT INFORMATION
  Report Type: 
  Country: None (occurrence: None)
  Receive Date: 20120327
  Receipt Date: 20120320
  Transmission Date: 20120608
  Serious: Yes (Hospitalization)
  Sender: FDA-Public Use
  Company Number: ES-ROCHE-1050833

PATIENT
  Age: 65 Year
  Sex: Male

DRUGS (3)
  1. PACLITAXEL [Interacting]
     Indication: LUNG NEOPLASM MALIGNANT
     Route: 042
     Dates: start: 20111213, end: 20120224
  2. AVASTIN [Suspect]
     Indication: LUNG NEOPLASM MALIGNANT
     Route: 042
     Dates: start: 20111213, end: 20120224
  3. CARBOPLATIN [Interacting]
     Indication: LUNG NEOPLASM MALIGNANT
     Route: 042
     Dates: start: 20111213, end: 20120224

REACTIONS (2)
  - PNEUMONIA NECROTISING [None]
  - DRUG INTERACTION [None]
